FAERS Safety Report 13591036 (Version 1)
Quarter: 2017Q2

REPORT INFORMATION
  Report Type: Spontaneous
  Country: SE (occurrence: SE)
  Receive Date: 20170530
  Receipt Date: 20170530
  Transmission Date: 20170830
  Serious: Yes (Other)
  Sender: FDA-Public Use
  Company Number: SE-PFIZER INC-2017228589

PATIENT
  Age: 59 Year
  Sex: Male

DRUGS (3)
  1. ABILIFY [Suspect]
     Active Substance: ARIPIPRAZOLE
  2. LYRICA [Suspect]
     Active Substance: PREGABALIN
     Dosage: 225 MG, UNK
  3. LYRICA [Suspect]
     Active Substance: PREGABALIN
     Dosage: 75 MG, UNK

REACTIONS (8)
  - Withdrawal syndrome [Unknown]
  - Autonomic nervous system imbalance [Unknown]
  - Anxiety [Unknown]
  - Serotonin syndrome [Unknown]
  - Panic disorder [Unknown]
  - Myalgia [Unknown]
  - Dependence [Not Recovered/Not Resolved]
  - Pain in extremity [Unknown]
